FAERS Safety Report 24109357 (Version 2)
Quarter: 2025Q2

REPORT INFORMATION
  Report Type: Report from Study
  Country: DE (occurrence: DE)
  Receive Date: 20240718
  Receipt Date: 20250414
  Transmission Date: 20250716
  Serious: Yes (Hospitalization, Other)
  Sender: ABBVIE
  Company Number: DE-ABBVIE-5839926

PATIENT
  Age: 73 Year
  Sex: Female

DRUGS (5)
  1. RINVOQ [Suspect]
     Active Substance: UPADACITINIB
     Indication: Rheumatoid arthritis
     Route: 048
     Dates: start: 202007
  2. CIMZIA [Concomitant]
     Active Substance: CERTOLIZUMAB PEGOL
     Indication: Product used for unknown indication
     Dates: start: 201804, end: 201810
  3. ORENCIA [Concomitant]
     Active Substance: ABATACEPT
     Indication: Product used for unknown indication
     Dates: start: 201810, end: 201904
  4. ORENCIA [Concomitant]
     Active Substance: ABATACEPT
     Indication: Product used for unknown indication
     Dates: start: 201906, end: 202007
  5. METHOTREXATE [Concomitant]
     Active Substance: METHOTREXATE
     Indication: Product used for unknown indication

REACTIONS (10)
  - Femur fracture [Unknown]
  - Cutibacterium acnes infection [Unknown]
  - Anaemia postoperative [Unknown]
  - Fall [Unknown]
  - Hip arthroplasty [Unknown]
  - Device dislocation [Unknown]
  - Staphylococcal infection [Unknown]
  - Internal fixation of fracture [Unknown]
  - Removal of internal fixation [Unknown]
  - Femur resection [Unknown]

NARRATIVE: CASE EVENT DATE: 20231101
